FAERS Safety Report 10641641 (Version 2)
Quarter: 2014Q4

REPORT INFORMATION
  Report Type: Spontaneous
  Country: ES (occurrence: ES)
  Receive Date: 20141209
  Receipt Date: 20141209
  Transmission Date: 20150529
  Serious: Yes (Other)
  Sender: FDA-Public Use
  Company Number: ES-PFIZER INC-2014323002

PATIENT
  Age: 52 Year
  Sex: Male

DRUGS (12)
  1. DEPAMIDE [Concomitant]
     Active Substance: VALPROMIDE
     Indication: DYSTHYMIC DISORDER
  2. DEPRAX [Concomitant]
     Active Substance: TRAZODONE HYDROCHLORIDE
     Indication: DYSTHYMIC DISORDER
  3. MAGNESIUM [Concomitant]
     Active Substance: MAGNESIUM
     Dosage: UNK
  4. SEDOTIME [Concomitant]
     Indication: DYSTHYMIC DISORDER
  5. BESITRAN [Suspect]
     Active Substance: SERTRALINE HYDROCHLORIDE
     Dosage: 150 MG, DAILY
     Dates: end: 2014
  6. ZINC [Concomitant]
     Active Substance: ZINC\ZINC CHLORIDE
     Dosage: UNK
  7. SEDOTIME [Concomitant]
     Indication: DEPRESSION
     Dosage: UNK
  8. DEPRAX [Concomitant]
     Active Substance: TRAZODONE HYDROCHLORIDE
     Indication: DEPRESSION
     Dosage: UNK
  9. BESITRAN [Suspect]
     Active Substance: SERTRALINE HYDROCHLORIDE
     Indication: DEPRESSION
     Dosage: 0.5 DF, UNK
  10. SERTRALINE [Suspect]
     Active Substance: SERTRALINE HYDROCHLORIDE
     Indication: DEPRESSION
     Dosage: 100 MG, UNK
     Dates: start: 2014, end: 2014
  11. DEPAMIDE [Concomitant]
     Active Substance: VALPROMIDE
     Indication: DEPRESSION
     Dosage: UNK
  12. BESITRAN [Suspect]
     Active Substance: SERTRALINE HYDROCHLORIDE
     Dosage: 50 MG, 4X/DAY
     Dates: start: 2014

REACTIONS (10)
  - Fall [Recovered/Resolved]
  - Depressed mood [None]
  - Major depression [Unknown]
  - Nervousness [Recovered/Resolved]
  - Drug ineffective [Recovered/Resolved]
  - Anxiety [Unknown]
  - Seizure [Recovered/Resolved]
  - Euphoric mood [Recovered/Resolved]
  - Product substitution issue [None]
  - Bruxism [Unknown]

NARRATIVE: CASE EVENT DATE: 2014
